FAERS Safety Report 9821371 (Version 1)
Quarter: 2014Q1

REPORT INFORMATION
  Report Type: Spontaneous
  Country: US (occurrence: None)
  Receive Date: 20140114
  Receipt Date: 20140114
  Transmission Date: 20141002
  Serious: Yes (Hospitalization)
  Sender: FDA-Public Use
  Company Number: SYM-2014-14716

PATIENT
  Age: 63 Year
  Sex: Female

DRUGS (1)
  1. XENAZINE (TETRABENAZINE) (12.5 MILLIGRAM, TABLET) (TETRABENAZINE) [Suspect]
     Indication: CHOREA
     Dosage: 12.5 MG, 1 TABLET BID, 1.5 TABLETS
     Dates: start: 20130920

REACTIONS (1)
  - Disease complication [None]
